FAERS Safety Report 6771723-4 (Version None)
Quarter: 2010Q2

REPORT INFORMATION
  Report Type: 
  Country: None (occurrence: None)
  Receive Date: 20100616
  Receipt Date: 20090917
  Transmission Date: 20101027
  Serious: No
  Sender: FDA-Public Use
  Company Number: US-ASTRAZENECA-2009SE13901

PATIENT
  Age: 769 Month
  Sex: Male

DRUGS (5)
  1. ATACAND [Suspect]
     Route: 048
     Dates: start: 20080201
  2. ATACAND [Suspect]
     Route: 048
  3. BISOPROLOL FUMARATE AND HYDROCHLOROTHIAZIDE [Concomitant]
  4. METFORMIN HCL [Concomitant]
  5. PLAVIX [Concomitant]

REACTIONS (5)
  - ANXIETY DISORDER [None]
  - BLOOD PRESSURE INCREASED [None]
  - CHEST PAIN [None]
  - HEADACHE [None]
  - NASAL CONGESTION [None]
